FAERS Safety Report 17942804 (Version 2)
Quarter: 2020Q2

REPORT INFORMATION
  Report Type: Report from Study
  Country: HN (occurrence: HN)
  Receive Date: 20200625
  Receipt Date: 20200626
  Transmission Date: 20200714
  Serious: Yes (Other)
  Sender: FDA-Public Use
  Company Number: NVSC2020HN177378

PATIENT
  Age: 67 Year
  Sex: Female

DRUGS (3)
  1. GALVUS MET [Suspect]
     Active Substance: METFORMIN HYDROCHLORIDE\VILDAGLIPTIN
     Indication: DIABETES MELLITUS
     Dosage: 1 DF, 50/1000 MG (APPROXIMATELY 2 OR 3 YEARS AGO)
     Route: 065
     Dates: end: 2019
  2. EXFORGE [Suspect]
     Active Substance: AMLODIPINE BESYLATE\VALSARTAN
     Indication: HYPERTENSION
     Dosage: 1 DF (5/160 MG) (STARTED APPROXIMATELY 5 YEARS AGO)
     Route: 065
     Dates: end: 2019
  3. EXFORGE [Suspect]
     Active Substance: AMLODIPINE BESYLATE\VALSARTAN
     Dosage: (10/320 MG)
     Route: 065
     Dates: start: 2019

REACTIONS (4)
  - Diabetes mellitus [Unknown]
  - Tension [Unknown]
  - Stress [Unknown]
  - Hypertension [Unknown]
